FAERS Safety Report 7956701-1 (Version None)
Quarter: 2011Q4

REPORT INFORMATION
  Report Type: 
  Country: None (occurrence: None)
  Receive Date: 20111205
  Receipt Date: 20111128
  Transmission Date: 20120403
  Serious: Yes (Other)
  Sender: FDA-Public Use
  Company Number: ES-PFIZER INC-HQ3001326JUN2002

PATIENT
  Age: 53 Year
  Sex: Female

DRUGS (4)
  1. ATROPINE [Concomitant]
     Route: 065
  2. VENLAFAXINE HCL [Suspect]
     Indication: DEPRESSION
     Dosage: 300 MG, DAILY
     Route: 048
  3. PROPOFOL [Interacting]
  4. SUXAMETHONIUM CHLORIDE [Concomitant]
     Route: 065

REACTIONS (2)
  - DRUG INTERACTION [None]
  - VENTRICULAR ASYSTOLE [None]
